FAERS Safety Report 5637275-7 (Version None)
Quarter: 2008Q1

REPORT INFORMATION
  Report Type: 
  Country: None (occurrence: None)
  Receive Date: 20080225
  Receipt Date: 20080214
  Transmission Date: 20080703
  Serious: Yes (Other)
  Sender: FDA-Public Use
  Company Number: CA-JNJFOC-20080204180

PATIENT
  Age: 51 Year
  Sex: Male
  Weight: 54 kg

DRUGS (6)
  1. TYLENOL (CAPLET) [Suspect]
  2. TYLENOL (CAPLET) [Suspect]
     Indication: DRUG USE FOR UNKNOWN INDICATION
  3. BUCKLEY'S MIXTURE [Suspect]
     Indication: COUGH
     Route: 048
  4. ASCORBIC ACID [Suspect]
     Indication: DRUG USE FOR UNKNOWN INDICATION
  5. PROTEGRA [Suspect]
     Indication: DRUG USE FOR UNKNOWN INDICATION
  6. CENTRUM [Suspect]
     Indication: DRUG USE FOR UNKNOWN INDICATION

REACTIONS (3)
  - ASTHENIA [None]
  - CHEST DISCOMFORT [None]
  - HEART RATE INCREASED [None]
